FAERS Safety Report 20049518 (Version 2)
Quarter: 2021Q4

REPORT INFORMATION
  Report Type: Spontaneous
  Country: US (occurrence: None)
  Receive Date: 20211109
  Receipt Date: 20211111
  Transmission Date: 20220303
  Serious: Yes (Hospitalization)
  Sender: FDA-Public Use
  Company Number: US-ROCHE-2951186

PATIENT
  Sex: Female

DRUGS (4)
  1. ACTEMRA [Suspect]
     Active Substance: TOCILIZUMAB
     Indication: Rheumatoid arthritis
     Dosage: 162MG/0.9ML, ONGOING: YES
     Route: 058
     Dates: start: 202105
  2. ACTEMRA [Suspect]
     Active Substance: TOCILIZUMAB
  3. COVID-19 VACCINE NOS [Concomitant]
     Active Substance: COVID-19 VACCINE NOS
  4. ENBREL [Concomitant]
     Active Substance: ETANERCEPT

REACTIONS (1)
  - Intestinal obstruction [Unknown]
